FAERS Safety Report 9792223 (Version 1)
Quarter: 2014Q1

REPORT INFORMATION
  Report Type: Spontaneous
  Country: NL (occurrence: NL)
  Receive Date: 20140102
  Receipt Date: 20140102
  Transmission Date: 20141002
  Serious: Yes (Other)
  Sender: FDA-Public Use
  Company Number: NL-IPSEN BIOPHARMACEUTICALS, INC.-2013-4783

PATIENT
  Age: 64 Year
  Sex: Male

DRUGS (3)
  1. SOMATULINE AUTOSOLUTION 120MG [Suspect]
     Indication: ACROMEGALY
     Dosage: 120 MG
     Route: 058
     Dates: start: 20130709
  2. SOMATULINE AUTOSOLUTION 120MG [Suspect]
     Dosage: 90 MG
     Route: 058
     Dates: start: 20130930, end: 20131030
  3. SOMATULINE AUTOSOLUTION 120MG [Suspect]
     Dosage: 90 MG
     Route: 058
     Dates: start: 20131206

REACTIONS (3)
  - Arrhythmia [Recovered/Resolved]
  - Alopecia [Not Recovered/Not Resolved]
  - Nausea [Not Recovered/Not Resolved]
